FAERS Safety Report 9178505 (Version 1)
Quarter: 2013Q1

REPORT INFORMATION
  Report Type: Report from Study
  Country: US (occurrence: US)
  Receive Date: 20130321
  Receipt Date: 20130321
  Transmission Date: 20140127
  Serious: Yes (Hospitalization)
  Sender: FDA-Public Use
  Company Number: US-JNJFOC-20130309500

PATIENT
  Age: 18 Year
  Sex: Male
  Weight: 52.3 kg

DRUGS (6)
  1. REMICADE [Suspect]
     Indication: COLITIS ULCERATIVE
     Route: 042
     Dates: start: 20100722
  2. HUMIRA [Concomitant]
     Indication: COLITIS ULCERATIVE
     Route: 065
     Dates: start: 20100930
  3. PROBIOTICS [Concomitant]
     Route: 065
  4. 6-MERCAPTOPURINE [Concomitant]
     Route: 065
  5. CIPROFLOXACIN [Concomitant]
     Route: 065
  6. FERROUS SULFATE [Concomitant]
     Route: 065

REACTIONS (1)
  - Pharyngitis [Recovered/Resolved]
